FAERS Safety Report 6140058-5 (Version None)
Quarter: 2009Q2

REPORT INFORMATION
  Report Type: 
  Country: None (occurrence: None)
  Receive Date: 20090401
  Receipt Date: 20090325
  Transmission Date: 20091009
  Serious: Yes (Other)
  Sender: FDA-Public Use
  Company Number: PHHY2009DE11562

PATIENT
  Sex: Female

DRUGS (11)
  1. RASILEZ [Suspect]
     Dosage: 300 MG/DAY
  2. SPIRONOLACTONE [Concomitant]
  3. TOREM [Concomitant]
  4. METOPROLOL [Concomitant]
  5. CARMEN [Concomitant]
  6. MOXOBETA [Concomitant]
  7. MICARDIS [Concomitant]
     Dosage: UNK
  8. VIGANTOLETTEN [Concomitant]
  9. GODAMED [Concomitant]
  10. ALLOPURINOL [Concomitant]
     Dosage: UNK
  11. IODIDE [Concomitant]

REACTIONS (2)
  - BLOOD CREATININE INCREASED [None]
  - GLOMERULAR FILTRATION RATE DECREASED [None]
